FAERS Safety Report 9037014 (Version 1)
Quarter: 2013Q1

REPORT INFORMATION
  Report Type: Spontaneous
  Country: AR (occurrence: None)
  Receive Date: 20130115
  Receipt Date: 20130115
  Transmission Date: 20140127
  Serious: Yes (Other)
  Sender: FDA-Public Use
  Company Number: DKLU1087768

PATIENT
  Age: 29 Year
  Sex: Female

DRUGS (5)
  1. COSMEGEN [Suspect]
     Indication: GESTATIONAL TROPHOBLASTIC TUMOUR
     Dosage: DAY 1 + 2
     Route: 040
  2. ETOPOSIDE (ETOPOSIDE) [Suspect]
     Indication: GESTATIONAL TROPHOBLASTIC TUMOUR
     Dosage: OVER 30 MIN; DAY 1, 2 + 8
     Route: 042
  3. METHOTREXATE (METHOTREXATE) [Suspect]
     Indication: GESTATIONAL TROPHOBLASTIC TUMOUR
     Dosage: DAY 1
     Route: 040
  4. PLATINUM [Suspect]
     Indication: GESTATIONAL TROPHOBLASTIC TUMOUR
     Dosage: 12 HOURS; DAY 8
     Route: 042
  5. FOLINIC ACID (FOLINIC ACID)(FOLINIC ACID) [Suspect]
     Indication: GESTATIONAL TROPHOBLASTIC TUMOUR
     Dosage: FOR 4 DOSES BEGINNING 24 H AFTER MTX
     Route: 030

REACTIONS (5)
  - Renal failure chronic [None]
  - Nephropathy toxic [None]
  - Drug resistance [None]
  - Choriocarcinoma [None]
  - Recurrent cancer [None]
